FAERS Safety Report 7290334-8 (Version None)
Quarter: 2011Q1

REPORT INFORMATION
  Report Type: 
  Country: None (occurrence: None)
  Receive Date: 20110214
  Receipt Date: 20110131
  Transmission Date: 20110831
  Serious: Yes (Death, Hospitalization)
  Sender: FDA-Public Use
  Company Number: US-BAYER-201032066NA

PATIENT
  Sex: Male

DRUGS (18)
  1. GABAPENTIN [Concomitant]
     Dosage: 1800 MG (DAILY DOSE), ,
  2. ZOCOR [Concomitant]
     Dosage: 20 MG (DAILY DOSE), ,
     Dates: end: 20100827
  3. ALBUTEROL [Concomitant]
  4. ASPIRIN [Concomitant]
     Dosage: 81 MG (DAILY DOSE)
     Dates: end: 20100827
  5. NIFEDIPINE [Concomitant]
     Dosage: 90 MG (DAILY DOSE), ,
  6. CYCLOSPORINE [Concomitant]
     Dosage: 250 MG (DAILY DOSE), ,
     Dates: start: 20070101
  7. METOPROLOL [Concomitant]
     Dosage: 75 MG (DAILY DOSE), ,
  8. ADVAIR DISKUS 100/50 [Concomitant]
  9. ATIVAN [Concomitant]
     Dosage: 0.5 MG (DAILY DOSE)
  10. LASIX [Concomitant]
     Dosage: 80 MG (DAILY DOSE), ,
  11. NEXAVAR [Suspect]
     Indication: HEPATIC CANCER METASTATIC
     Route: 048
     Dates: start: 20100723, end: 20100823
  12. ALLOPURINOL [Concomitant]
     Dosage: 100 MG (DAILY DOSE), ,
  13. COLACE [Concomitant]
     Dosage: 100 MG (DAILY DOSE), ,
  14. KAYEXALATE [Concomitant]
     Dosage: 100 MG (DAILY DOSE), ,
  15. CALCIUM WITH VITAMIN D [Concomitant]
  16. CELEXA [Concomitant]
     Dosage: 20 MG (DAILY DOSE), ,
  17. PREDNISONE [Concomitant]
     Dosage: 10 MG (DAILY DOSE), ,
     Dates: start: 20070101
  18. PRILOSEC [Concomitant]
     Dosage: 20 MG (DAILY DOSE), ,

REACTIONS (3)
  - DEATH [None]
  - DEHYDRATION [None]
  - HOSPITALISATION [None]
